FAERS Safety Report 5853336-1 (Version None)
Quarter: 2008Q3

REPORT INFORMATION
  Report Type: 
  Country: None (occurrence: None)
  Receive Date: 20080821
  Receipt Date: 20080812
  Transmission Date: 20090109
  Serious: Yes (Hospitalization, Other)
  Sender: FDA-Public Use
  Company Number: CA-PFIZER INC-2008067875

PATIENT
  Age: 49 Year
  Sex: Male

DRUGS (4)
  1. CHANTIX [Suspect]
     Route: 048
     Dates: start: 20080525, end: 20080801
  2. LAMIVUDINE [Concomitant]
  3. ADEFOVIR DIPIVOXIL KIT [Concomitant]
  4. LEVAQUIN [Concomitant]

REACTIONS (4)
  - HAEMOLYTIC ANAEMIA [None]
  - PULMONARY EMBOLISM [None]
  - RENAL FAILURE ACUTE [None]
  - THROMBOCYTOPENIA [None]
